FAERS Safety Report 16426679 (Version 2)
Quarter: 2019Q4

REPORT INFORMATION
  Report Type: Spontaneous
  Country: FR (occurrence: FR)
  Receive Date: 20190613
  Receipt Date: 20191211
  Transmission Date: 20200122
  Serious: Yes (Death, Hospitalization, Other)
  Sender: FDA-Public Use
  Company Number: FR-SAMSUNG BIOEPIS-SB-2019-14115

PATIENT
  Age: 58 Year
  Sex: Male

DRUGS (3)
  1. MERCAPTOPURINE. [Suspect]
     Active Substance: MERCAPTOPURINE
     Dosage: UNKNOWN
     Route: 065
     Dates: start: 201012
  2. INFLIXIMAB [Suspect]
     Active Substance: INFLIXIMAB
     Indication: COLITIS ULCERATIVE
     Dosage: UNKNOWN
     Route: 041
     Dates: start: 201012
  3. MERCAPTOPURINE. [Suspect]
     Active Substance: MERCAPTOPURINE
     Indication: COLITIS ULCERATIVE
     Dosage: UNKNOWN
     Route: 065
     Dates: start: 200908

REACTIONS (10)
  - Pyrexia [Unknown]
  - Metastases to rectum [Unknown]
  - General physical health deterioration [Unknown]
  - Ureteric obstruction [Unknown]
  - Diarrhoea haemorrhagic [Not Recovered/Not Resolved]
  - Linitis plastica [Unknown]
  - Drug ineffective [Unknown]
  - Septic shock [Fatal]
  - Rectal stenosis [Unknown]
  - Adenocarcinoma of colon [Unknown]

NARRATIVE: CASE EVENT DATE: 2017
